FAERS Safety Report 24535634 (Version 1)
Quarter: 2024Q4

REPORT INFORMATION
  Report Type: Spontaneous
  Country: US (occurrence: US)
  Receive Date: 20241022
  Receipt Date: 20241022
  Transmission Date: 20250114
  Serious: No
  Sender: MYLAN
  Company Number: US-MYLANLABS-2024M1093955

PATIENT
  Sex: Female

DRUGS (1)
  1. FENTANYL TRANSDERMAL SYSTEM [Suspect]
     Active Substance: FENTANYL
     Indication: Arthralgia
     Dosage: 12 MICROGRAM, QH (PER HOUR, APPLIED TWO PATCHES EVERY 72 HOURS)
     Route: 062
     Dates: start: 20241013

REACTIONS (2)
  - Off label use [Unknown]
  - Product adhesion issue [Unknown]

NARRATIVE: CASE EVENT DATE: 20241013
